FAERS Safety Report 6805179-X (Version None)
Quarter: 2010Q2

REPORT INFORMATION
  Report Type: 
  Country: None (occurrence: None)
  Receive Date: 20100628
  Receipt Date: 20070911
  Transmission Date: 20101027
  Serious: No
  Sender: FDA-Public Use
  Company Number: US-PFIZER INC-2007075869

PATIENT
  Sex: Female
  Weight: 54.545 kg

DRUGS (3)
  1. PROCARDIA XL [Suspect]
     Indication: BLOOD PRESSURE
     Dates: start: 20070901
  2. TENORMIN [Concomitant]
     Indication: BLOOD PRESSURE
  3. LANOXIN [Concomitant]

REACTIONS (2)
  - HEADACHE [None]
  - MYALGIA [None]
